FAERS Safety Report 6107740-7 (Version None)
Quarter: 2009Q1

REPORT INFORMATION
  Report Type: 
  Country: None (occurrence: None)
  Receive Date: 20090309
  Receipt Date: 20090304
  Transmission Date: 20090719
  Serious: Yes (Disabling)
  Sender: FDA-Public Use
  Company Number: A0771353A

PATIENT
  Age: 39 Year
  Sex: Female
  Weight: 45.5 kg

DRUGS (3)
  1. LAMICTAL [Suspect]
     Indication: BIPOLAR DISORDER
     Dosage: 50MG PER DAY
     Route: 048
     Dates: start: 20090129
  2. RISPERDAL [Concomitant]
  3. LEXAPRO [Concomitant]

REACTIONS (9)
  - ANOREXIA [None]
  - ARTHRALGIA [None]
  - ASTHENIA [None]
  - BALANCE DISORDER [None]
  - CONFUSIONAL STATE [None]
  - FATIGUE [None]
  - INFLUENZA [None]
  - MYALGIA [None]
  - RESPIRATORY DISORDER [None]
